FAERS Safety Report 13292743 (Version 1)
Quarter: 2017Q1

REPORT INFORMATION
  Report Type: Spontaneous
  Country: TR (occurrence: TR)
  Receive Date: 20170303
  Receipt Date: 20170303
  Transmission Date: 20170428
  Serious: Yes (Other)
  Sender: FDA-Public Use
  Company Number: PHHY2017TR032302

PATIENT

DRUGS (2)
  1. ACZ885 [Suspect]
     Active Substance: CANAKINUMAB
     Indication: CRYOPYRIN ASSOCIATED PERIODIC SYNDROME
     Dosage: 2 MG/KG, EVERY 8 WEEKS
     Route: 065
  2. ACZ885 [Suspect]
     Active Substance: CANAKINUMAB
     Dosage: 3 MG/KG, EVERY 4 WEEKS
     Route: 065

REACTIONS (5)
  - Blood fibrinogen decreased [Unknown]
  - Platelet count decreased [Unknown]
  - Pyrexia [Unknown]
  - Histiocytosis haematophagic [Recovering/Resolving]
  - Hyperferritinaemia [Unknown]
